FAERS Safety Report 5200235-4 (Version None)
Quarter: 2007Q1

REPORT INFORMATION
  Report Type: 
  Country: None (occurrence: None)
  Receive Date: 20070105
  Receipt Date: 20061214
  Transmission Date: 20070707
  Serious: Yes (Hospitalization)
  Sender: FDA-Public Use
  Company Number: FR-PFIZER INC-1343-13359

PATIENT
  Age: 1 Day
  Sex: Female
  Weight: 2.94 kg

DRUGS (10)
  1. VIRACEPT [Suspect]
     Indication: HIV INFECTION
     Dosage: TEXT:UNKNOWN-FREQ:UNKNOWN
     Route: 064
  2. VIRACEPT [Suspect]
     Dosage: TEXT:UNKNOWN-FREQ:UNKNOWN
     Route: 064
  3. EPIVIR [Suspect]
     Indication: HIV INFECTION
     Dosage: TEXT:UNKNOWN-FREQ:UNKNOWN
     Route: 048
  4. EPIVIR [Suspect]
     Dosage: TEXT:UNKNOWN-FREQ:UNKNOWN
     Route: 064
  5. ZERIT [Suspect]
     Indication: HIV INFECTION
     Dosage: TEXT:UNKNOWN-FREQ:UNKNOWN
     Route: 048
  6. ZERIT [Suspect]
     Dosage: TEXT:UNKNOWN-FREQ:UNKNOWN
     Route: 064
  7. ZERIT [Suspect]
     Dosage: TEXT:UNKNOWN-FREQ:UNKNOWN
     Route: 064
  8. RETROVIR [Suspect]
     Indication: ILL-DEFINED DISORDER
     Dosage: TEXT:UNKNOWN-FREQ:UNKNOWN
     Route: 042
  9. METHADONE HCL [Concomitant]
     Dosage: TEXT:UNKNOWN-FREQ:UNKNOWN
     Route: 065
  10. INTERFERON [Concomitant]
     Dosage: TEXT:UNKNOWN-FREQ:UNKNOWN
     Route: 065

REACTIONS (9)
  - ANAEMIA [None]
  - ANAEMIA NEONATAL [None]
  - BLOOD LACTIC ACID [None]
  - DRUG EXPOSURE DURING PREGNANCY [None]
  - HEPATOMEGALY [None]
  - HYPERTRIGLYCERIDAEMIA [None]
  - NEONATAL HEPATOMEGALY [None]
  - THROMBOCYTOPENIA [None]
  - THROMBOCYTOPENIA NEONATAL [None]
